FAERS Safety Report 4457656-7 (Version None)
Quarter: 2004Q3

REPORT INFORMATION
  Report Type: 
  Country: None (occurrence: None)
  Receive Date: 20040922
  Receipt Date: 20040915
  Transmission Date: 20050211
  Serious: Yes (Hospitalization)
  Sender: FDA-Public Use
  Company Number: MK200409-0142-1

PATIENT

DRUGS (1)
  1. ANAFRANIL [Suspect]
     Dosage: 75MG, DAILY

REACTIONS (4)
  - DRUG EXPOSURE DURING PREGNANCY [None]
  - DRUG WITHDRAWAL SYNDROME NEONATAL [None]
  - HEPATOMEGALY [None]
  - LABORATORY TEST ABNORMAL [None]
